FAERS Safety Report 5209371-X (Version None)
Quarter: 2007Q1

REPORT INFORMATION
  Report Type: 
  Country: None (occurrence: None)
  Receive Date: 20070116
  Receipt Date: 20070112
  Transmission Date: 20070707
  Serious: Yes (Other)
  Sender: FDA-Public Use
  Company Number: DE-BRISTOL-MYERS SQUIBB COMPANY-13643168

PATIENT

DRUGS (1)
  1. LITALIR [Suspect]

REACTIONS (1)
  - HISTIOCYTOSIS HAEMATOPHAGIC [None]
